FAERS Safety Report 4839007-9 (Version None)
Quarter: 2005Q4

REPORT INFORMATION
  Report Type: 
  Country: None (occurrence: None)
  Receive Date: 20051129
  Receipt Date: 20051114
  Transmission Date: 20060501
  Serious: Yes (Hospitalization)
  Sender: FDA-Public Use
  Company Number: BEWYE138915NOV05

PATIENT
  Sex: Male

DRUGS (2)
  1. ENBREL [Suspect]
     Indication: RHEUMATOID ARTHRITIS
     Route: 058
     Dates: start: 20020523
  2. ENBREL [Suspect]
     Route: 058
     Dates: start: 20040919

REACTIONS (2)
  - ANKLE FRACTURE [None]
  - POSTOPERATIVE INFECTION [None]
